FAERS Safety Report 6570862-0 (Version None)
Quarter: 2010Q1

REPORT INFORMATION
  Report Type: 
  Country: None (occurrence: None)
  Receive Date: 20100204
  Receipt Date: 20100128
  Transmission Date: 20100710
  Serious: Yes (Death)
  Sender: FDA-Public Use
  Company Number: RU-CELGENEUS-251-21880-09121433

PATIENT
  Sex: Female
  Weight: 44 kg

DRUGS (11)
  1. REVLIMID [Suspect]
     Route: 048
     Dates: start: 20091127, end: 20091211
  2. DEXAMETHASONE [Suspect]
     Route: 048
     Dates: start: 20091209, end: 20091213
  3. DEXAMETHASONE [Suspect]
     Route: 048
     Dates: start: 20091205, end: 20091208
  4. DEXAMETHASONE [Suspect]
     Route: 048
     Dates: start: 20091127, end: 20091130
  5. FRAXIPARIN [Concomitant]
     Indication: THROMBOSIS PROPHYLAXIS
     Route: 058
     Dates: start: 20091127, end: 20091212
  6. OMEZ [Concomitant]
     Route: 048
     Dates: start: 20091027, end: 20091212
  7. FAMOTIDIN [Concomitant]
     Route: 048
  8. ALLOPURINOL [Concomitant]
     Indication: HYPERURICOSURIA
     Route: 048
     Dates: start: 20091127, end: 20091212
  9. NIZORAL [Concomitant]
     Indication: INFECTION PROPHYLAXIS
     Route: 048
     Dates: start: 20091127, end: 20091212
  10. KLACID [Concomitant]
     Indication: INFECTION PROPHYLAXIS
     Route: 048
     Dates: start: 20091127, end: 20091212
  11. OCTAGAM [Concomitant]
     Indication: INFECTION PROPHYLAXIS
     Route: 051
     Dates: start: 20091127, end: 20091128

REACTIONS (4)
  - DRUG INTOLERANCE [None]
  - MULTIPLE MYELOMA [None]
  - RHABDOMYOLYSIS [None]
  - STEROID WITHDRAWAL SYNDROME [None]
